FAERS Safety Report 5422256-9 (Version None)
Quarter: 2007Q3

REPORT INFORMATION
  Report Type: 
  Country: None (occurrence: None)
  Receive Date: 20070822
  Receipt Date: 20070814
  Transmission Date: 20080115
  Serious: Yes (Hospitalization)
  Sender: FDA-Public Use
  Company Number: AU-AVENTIS-200713969EU

PATIENT
  Age: 74 Year
  Sex: Male

DRUGS (7)
  1. NATRILIX-SR [Suspect]
     Indication: ESSENTIAL HYPERTENSION
     Route: 048
     Dates: end: 20070201
  2. QUICKEZE [Suspect]
     Indication: GASTRIC DISORDER
     Route: 048
     Dates: start: 20070201, end: 20070201
  3. ESOMEPRAZOLE MAGNESIUM [Concomitant]
  4. TELMISARTAN [Concomitant]
  5. DIAZEPAM [Concomitant]
  6. BECLOMETHASONE DIPROPIONATE [Concomitant]
  7. SALBUTAMOL [Concomitant]

REACTIONS (4)
  - DYSPEPSIA [None]
  - GASTRIC ULCER [None]
  - HYPERCALCAEMIA [None]
  - RENAL FAILURE ACUTE [None]
